FAERS Safety Report 10250677 (Version 2)
Quarter: 2014Q3

REPORT INFORMATION
  Report Type: Spontaneous
  Country: CN (occurrence: CN)
  Receive Date: 20140620
  Receipt Date: 20140710
  Transmission Date: 20150326
  Serious: Yes (Hospitalization)
  Sender: FDA-Public Use
  Company Number: CN-VIIV HEALTHCARE LIMITED-B1005837A

PATIENT
  Age: 31 Year
  Sex: Male

DRUGS (3)
  1. LAMIVUDINE-HIV [Concomitant]
     Active Substance: LAMIVUDINE
     Indication: HIV INFECTION
     Route: 065
     Dates: start: 201004
  2. ZIDOVUDINE. [Suspect]
     Active Substance: ZIDOVUDINE
     Indication: HIV INFECTION
     Route: 065
     Dates: start: 201004, end: 20130308
  3. EFAVIRENZ [Concomitant]
     Active Substance: EFAVIRENZ
     Indication: HIV INFECTION
     Route: 065
     Dates: start: 201004

REACTIONS (10)
  - Conjunctival pallor [Unknown]
  - Red blood cell count decreased [Unknown]
  - Anaemia [Unknown]
  - Neutrophil count decreased [Unknown]
  - Mucosal discolouration [Unknown]
  - Bone marrow failure [Recovered/Resolved]
  - Fatigue [Unknown]
  - Neutropenia [Unknown]
  - Palpitations [Unknown]
  - Haemoglobin decreased [Unknown]

NARRATIVE: CASE EVENT DATE: 2012
